FAERS Safety Report 15189127 (Version 1)
Quarter: 2018Q3

REPORT INFORMATION
  Report Type: Spontaneous
  Country: US (occurrence: US)
  Receive Date: 20180724
  Receipt Date: 20180724
  Transmission Date: 20181010
  Serious: Yes (Hospitalization)
  Sender: FDA-Public Use
  Company Number: US-ASTELLAS-2018US032777

PATIENT
  Age: 33 Year
  Sex: Female

DRUGS (3)
  1. MICAFUNGIN [Suspect]
     Active Substance: MICAFUNGIN
     Indication: CANDIDA INFECTION
     Dosage: UNK, UNKNOWN FREQ.
     Route: 065
  2. INSULIN [Concomitant]
     Active Substance: INSULIN NOS
     Indication: DIABETIC KETOACIDOSIS
     Dosage: UNK UNK, UNKNOWN FREQ.
     Route: 065
  3. VORICONAZOLE. [Concomitant]
     Active Substance: VORICONAZOLE
     Indication: CANDIDA INFECTION
     Dosage: UNK UNK, UNKNOWN FREQ.
     Route: 065

REACTIONS (5)
  - Empyema [Unknown]
  - Drug ineffective [Unknown]
  - Central nervous system abscess [Recovering/Resolving]
  - Candida infection [Recovering/Resolving]
  - Hypopituitarism [Unknown]
